FAERS Safety Report 10307024 (Version 1)
Quarter: 2014Q3

REPORT INFORMATION
  Report Type: Report from Study
  Country: IT (occurrence: IT)
  Receive Date: 20140715
  Receipt Date: 20140715
  Transmission Date: 20150326
  Serious: Yes (Other)
  Sender: FDA-Public Use
  Company Number: IT-009507513-1407ITA005813

PATIENT
  Sex: Female

DRUGS (8)
  1. PROGESTERONE. [Concomitant]
     Active Substance: PROGESTERONE
     Dosage: 50MG/DIE
     Route: 030
  2. GONADOTROPIN, CHORIONIC [Suspect]
     Active Substance: CHORIOGONADOTROPIN ALFA
     Indication: IN VITRO FERTILISATION
     Dosage: 150 IU/DIE
     Route: 058
  3. GONADOTROPIN, CHORIONIC [Suspect]
     Active Substance: CHORIOGONADOTROPIN ALFA
     Indication: OVARIAN FAILURE
  4. ESTRADIOL. [Suspect]
     Active Substance: ESTRADIOL
     Indication: IN VITRO FERTILISATION
     Dosage: 50 MICROGRAM, QOD
     Route: 062
  5. PROGESTERONE. [Suspect]
     Active Substance: PROGESTERONE
     Indication: SUPPORTIVE CARE
     Dosage: 200 MG TWICE/DIE
     Route: 048
  6. ESTRADIOL. [Suspect]
     Active Substance: ESTRADIOL
     Indication: OVARIAN FAILURE
  7. PRASTERONE [Concomitant]
     Active Substance: PRASTERONE
     Indication: IN VITRO FERTILISATION
     Dosage: 25 MG X3/DIE
     Route: 048
  8. PRASTERONE [Concomitant]
     Active Substance: PRASTERONE
     Indication: OVARIAN FAILURE

REACTIONS (2)
  - Abortion early [Unknown]
  - Maternal exposure during pregnancy [Recovered/Resolved]
